FAERS Safety Report 18526322 (Version 1)
Quarter: 2020Q4

REPORT INFORMATION
  Report Type: Spontaneous
  Country: DE (occurrence: DE)
  Receive Date: 20201120
  Receipt Date: 20201120
  Transmission Date: 20210114
  Serious: Yes (Other)
  Sender: FDA-Public Use
  Company Number: DE-ASTELLAS-2020US035312

PATIENT
  Sex: Male

DRUGS (4)
  1. ADVAGRAF [Suspect]
     Active Substance: TACROLIMUS
     Route: 048
  2. ADVAGRAF [Suspect]
     Active Substance: TACROLIMUS
     Route: 048
  3. ADVAGRAF [Suspect]
     Active Substance: TACROLIMUS
     Indication: LIVER TRANSPLANT
     Route: 048
  4. ADVAGRAF [Suspect]
     Active Substance: TACROLIMUS
     Route: 048
     Dates: start: 202011

REACTIONS (2)
  - Drug level abnormal [Recovered/Resolved]
  - Oesophageal squamous cell carcinoma [Unknown]

NARRATIVE: CASE EVENT DATE: 20200930
